FAERS Safety Report 4462534-3 (Version None)
Quarter: 2004Q3

REPORT INFORMATION
  Report Type: 
  Country: None (occurrence: None)
  Receive Date: 20040929
  Receipt Date: 20040920
  Transmission Date: 20050211
  Serious: Yes (Hospitalization)
  Sender: FDA-Public Use
  Company Number: GB-MERCK-0409GBR00200

PATIENT
  Sex: Male

DRUGS (5)
  1. [THERAPY UNSPECIFIED] [Concomitant]
     Route: 065
     Dates: start: 20040916
  2. [THERAPY UNSPECIFIED] [Concomitant]
     Route: 065
     Dates: end: 20040915
  3. INDOCIN [Concomitant]
     Route: 048
     Dates: end: 20040916
  4. VIOXX [Suspect]
     Route: 048
     Dates: start: 20040917
  5. WARFARIN [Concomitant]
     Route: 065
     Dates: start: 20040916

REACTIONS (2)
  - CHEST PAIN [None]
  - PORPHYRIA ACUTE [None]
